FAERS Safety Report 8145310-X (Version None)
Quarter: 2012Q1

REPORT INFORMATION
  Report Type: 
  Country: None (occurrence: None)
  Receive Date: 20120217
  Receipt Date: 20120207
  Transmission Date: 20120608
  Serious: Yes (Hospitalization, Other)
  Sender: FDA-Public Use
  Company Number: US-MUTUAL PHARMACEUTICAL COMPANY, INC.-CLCY20120034

PATIENT
  Sex: Male

DRUGS (2)
  1. COLCRYS [Suspect]
     Indication: GOUT
     Route: 048
  2. COLCRYS [Suspect]
     Indication: PROPHYLAXIS
     Route: 048
     Dates: start: 20111201

REACTIONS (2)
  - RENAL FAILURE [None]
  - CARDIAC FAILURE CONGESTIVE [None]
